FAERS Safety Report 8510706-0 (Version None)
Quarter: 2012Q3

REPORT INFORMATION
  Report Type: 
  Country: None (occurrence: None)
  Receive Date: 20120703
  Receipt Date: 20120625
  Transmission Date: 20120928
  Serious: Yes (Other)
  Sender: FDA-Public Use
  Company Number: AUR-APL-2012-02770

PATIENT
  Sex: Female

DRUGS (3)
  1. ALENDRONIC ACID (ALENDRONIC ACID) [Suspect]
     Indication: OSTEONECROSIS
     Dosage: (70 MG), ORAL
     Route: 048
     Dates: start: 20120330, end: 20120416
  2. OMEPRAZOLE [Concomitant]
  3. BUPRENORPHINE [Concomitant]

REACTIONS (3)
  - PAIN IN JAW [None]
  - EPIGASTRIC DISCOMFORT [None]
  - DENTAL DISCOMFORT [None]
